FAERS Safety Report 5337120-3 (Version None)
Quarter: 2007Q2

REPORT INFORMATION
  Report Type: 
  Country: None (occurrence: None)
  Receive Date: 20070529
  Receipt Date: 20070514
  Transmission Date: 20071010
  Serious: Yes (Other)
  Sender: FDA-Public Use
  Company Number: JP-ASTRAZENECA-2007AP02887

PATIENT
  Age: 28915 Day
  Sex: Female

DRUGS (21)
  1. DIPRIVAN [Suspect]
     Indication: SEDATION
     Route: 042
     Dates: start: 20070502, end: 20070508
  2. UNASYN [Concomitant]
     Indication: HEPATITIS
     Route: 041
     Dates: start: 20070502, end: 20070510
  3. LASIX [Concomitant]
     Indication: CARDIAC FAILURE
     Route: 042
     Dates: start: 20070502
  4. CATABON [Concomitant]
     Indication: CARDIAC FAILURE
     Route: 041
     Dates: start: 20070502
  5. URSO 250 [Concomitant]
     Indication: HEPATIC CIRRHOSIS
     Route: 048
     Dates: start: 20070502
  6. URSO 250 [Concomitant]
     Indication: HEPATIC ENCEPHALOPATHY
     Route: 048
     Dates: start: 20070502
  7. LACTULOSE [Concomitant]
     Indication: HEPATIC CIRRHOSIS
     Route: 048
     Dates: start: 20070502
  8. LACTULOSE [Concomitant]
     Indication: HEPATIC ENCEPHALOPATHY
     Route: 048
     Dates: start: 20070502
  9. AMINOLEBAN [Concomitant]
     Indication: HEPATIC CIRRHOSIS
     Route: 048
     Dates: start: 20070502
  10. AMINOLEBAN [Concomitant]
     Indication: HEPATIC ENCEPHALOPATHY
     Route: 048
     Dates: start: 20070502
  11. KAMAG G [Concomitant]
     Indication: HEPATIC CIRRHOSIS
     Route: 048
     Dates: start: 20070502
  12. KAMAG G [Concomitant]
     Indication: HEPATIC ENCEPHALOPATHY
     Route: 048
     Dates: start: 20070502
  13. PANTOSIN [Concomitant]
     Indication: HEPATIC CIRRHOSIS
     Route: 048
     Dates: start: 20070502
  14. PANTOSIN [Concomitant]
     Indication: HEPATIC ENCEPHALOPATHY
     Route: 048
     Dates: start: 20070502
  15. GASTER [Concomitant]
     Indication: HEPATIC CIRRHOSIS
     Route: 048
     Dates: start: 20070502
  16. GASTER [Concomitant]
     Indication: HEPATIC ENCEPHALOPATHY
     Route: 048
     Dates: start: 20070502
  17. PROMAC [Concomitant]
     Indication: HEPATIC CIRRHOSIS
     Route: 048
     Dates: start: 20070502
  18. PROMAC [Concomitant]
     Indication: HEPATIC ENCEPHALOPATHY
     Route: 048
     Dates: start: 20070502
  19. ASPIRIN [Concomitant]
     Indication: CARDIAC FAILURE
     Route: 048
     Dates: start: 20070502
  20. ALDACTONE [Concomitant]
     Indication: CARDIAC FAILURE
     Route: 048
     Dates: start: 20070502
  21. ARTIST [Concomitant]
     Indication: CARDIAC FAILURE
     Route: 048
     Dates: start: 20070502

REACTIONS (1)
  - ALTERED STATE OF CONSCIOUSNESS [None]
